FAERS Safety Report 10869424 (Version 1)
Quarter: 2015Q1

REPORT INFORMATION
  Report Type: Spontaneous
  Country: GB (occurrence: GB)
  Receive Date: 20150226
  Receipt Date: 20150226
  Transmission Date: 20150721
  Serious: Yes (Other)
  Sender: FDA-Public Use
  Company Number: GB-DRREDDYS-GER/UKI/15/0046228

PATIENT
  Age: 30 Year
  Sex: Female
  Weight: 55 kg

DRUGS (3)
  1. OLANZAPINE. [Suspect]
     Active Substance: OLANZAPINE
     Indication: PSYCHOTIC DISORDER
     Route: 048
     Dates: start: 2014, end: 2015
  2. AMISULPRIDE [Suspect]
     Active Substance: AMISULPRIDE
     Indication: PSYCHOTIC DISORDER
     Route: 048
     Dates: start: 2014, end: 2015
  3. ARIPIPRAZOLE. [Suspect]
     Active Substance: ARIPIPRAZOLE
     Indication: PSYCHOTIC DISORDER
     Route: 048
     Dates: start: 2014, end: 2015

REACTIONS (2)
  - Suicidal ideation [Not Recovered/Not Resolved]
  - Depression [Not Recovered/Not Resolved]

NARRATIVE: CASE EVENT DATE: 2014
